FAERS Safety Report 9284491 (Version 2)
Quarter: 2013Q2

REPORT INFORMATION
  Report Type: Spontaneous
  Country: AT (occurrence: AT)
  Receive Date: 20130510
  Receipt Date: 20130520
  Transmission Date: 20140414
  Serious: Yes (Life-Threatening)
  Sender: FDA-Public Use
  Company Number: AT-ASTRAZENECA-2013SE31808

PATIENT
  Age: 2 Year
  Sex: Male

DRUGS (1)
  1. XYLOCAINE GEL [Suspect]
     Route: 048

REACTIONS (3)
  - Accidental overdose [Unknown]
  - Posterior reversible encephalopathy syndrome [Recovered/Resolved]
  - Cardiac arrest [Recovered/Resolved]
